FAERS Safety Report 6524252-7 (Version None)
Quarter: 2009Q4

REPORT INFORMATION
  Report Type: 
  Country: None (occurrence: None)
  Receive Date: 20091231
  Receipt Date: 20091221
  Transmission Date: 20100525
  Serious: Yes (Hospitalization)
  Sender: FDA-Public Use
  Company Number: JP-ABBOTT-09P-087-0616070-00

PATIENT
  Sex: Female
  Weight: 60 kg

DRUGS (14)
  1. HUMIRA [Suspect]
     Indication: RHEUMATOID ARTHRITIS
     Route: 058
     Dates: start: 20090615, end: 20090625
  2. HUMIRA [Suspect]
     Route: 058
     Dates: start: 20090714, end: 20090825
  3. HUMIRA [Suspect]
     Route: 058
     Dates: start: 20090925
  4. ISONIAZID [Suspect]
     Indication: ANTIBIOTIC PROPHYLAXIS
     Route: 048
     Dates: end: 20090909
  5. METHYLPREDNISOLONE [Concomitant]
     Indication: RHEUMATOID ARTHRITIS
     Route: 048
  6. FLUTICASONE PROPIONATE [Concomitant]
     Indication: ASTHMA
     Dosage: 2 INHALATIONS/DAY
     Route: 055
  7. OMEPRAZOLE [Concomitant]
     Indication: GASTRITIS PROPHYLAXIS
  8. ETIZOLAM [Concomitant]
     Indication: ANXIETY DISORDER
  9. ZOPICLONE [Concomitant]
     Indication: INSOMNIA
  10. FEXOFENADINE HCL [Concomitant]
     Indication: DRUG USE FOR UNKNOWN INDICATION
  11. TIZANIDINE HYDROCHLORIDE [Concomitant]
     Indication: CERVICOBRACHIAL SYNDROME
  12. TRIAZOLAM [Concomitant]
     Indication: INSOMNIA
  13. SALMETEROL XINAFOATE [Concomitant]
     Indication: DRUG USE FOR UNKNOWN INDICATION
     Dosage: 2 INHALATIONS/DAY
     Route: 055
  14. KETOPROFEN [Concomitant]
     Indication: RHEUMATOID ARTHRITIS
     Dosage: 1 SHEET AS NEEDED

REACTIONS (1)
  - HEPATITIS [None]
